FAERS Safety Report 5454939-9 (Version None)
Quarter: 2007Q3

REPORT INFORMATION
  Report Type: 
  Country: None (occurrence: None)
  Receive Date: 20070917
  Receipt Date: 20070905
  Transmission Date: 20080115
  Serious: Yes (Hospitalization, Other)
  Sender: FDA-Public Use
  Company Number: US-PFIZER INC-2007074878

PATIENT
  Sex: Female
  Weight: 44.09 kg

DRUGS (10)
  1. CHANTIX [Suspect]
     Indication: SMOKING CESSATION THERAPY
  2. ZOCOR [Concomitant]
  3. VASOTEC [Concomitant]
  4. GLUCOPHAGE [Concomitant]
  5. COLACE [Concomitant]
  6. PAXIL [Concomitant]
  7. NEXIUM [Concomitant]
  8. BACLOFEN [Concomitant]
  9. NORVASC [Concomitant]
  10. INSULIN DETEMIR [Concomitant]
     Dosage: TEXT:10 UNITS

REACTIONS (6)
  - FALL [None]
  - FRACTURED SACRUM [None]
  - HYPERCHLORHYDRIA [None]
  - PELVIC PAIN [None]
  - RIB FRACTURE [None]
  - VOMITING [None]
